FAERS Safety Report 19211441 (Version 1)
Quarter: 2021Q2

REPORT INFORMATION
  Report Type: Spontaneous
  Country: US (occurrence: US)
  Receive Date: 20210504
  Receipt Date: 20210504
  Transmission Date: 20210717
  Serious: Yes (Hospitalization, Other)
  Sender: FDA-Public Use
  Company Number: US-MYLANLABS-2021M1025033

PATIENT
  Sex: Female

DRUGS (1)
  1. DIMETHYL FUMARATE DELAYED?RELEASE CAPSULES [Suspect]
     Active Substance: DIMETHYL FUMARATE
     Indication: PRODUCT USED FOR UNKNOWN INDICATION
     Dosage: 240 MILLIGRAM
     Dates: start: 20201214

REACTIONS (8)
  - Yellow skin [Recovered/Resolved]
  - Hospitalisation [Unknown]
  - Body temperature increased [Recovering/Resolving]
  - Nail discolouration [Recovered/Resolved]
  - Memory impairment [Recovering/Resolving]
  - Fatigue [Recovering/Resolving]
  - Product substitution issue [Unknown]
  - Multiple sclerosis [Recovered/Resolved]
